FAERS Safety Report 8083411-5 (Version None)
Quarter: 2012Q1

REPORT INFORMATION
  Report Type: 
  Country: None (occurrence: None)
  Receive Date: 20120127
  Receipt Date: 20110131
  Transmission Date: 20120608
  Serious: No
  Sender: FDA-Public Use
  Company Number: US-ABBOTT-11P-163-0702894-00

PATIENT
  Sex: Female

DRUGS (2)
  1. METHOTREXATE [Concomitant]
     Indication: PRODUCT USED FOR UNKNOWN INDICATION
  2. HUMIRA [Suspect]
     Indication: PSORIATIC ARTHROPATHY
     Dates: start: 20101203

REACTIONS (10)
  - CONSTIPATION [None]
  - SKIN ODOUR ABNORMAL [None]
  - FATIGUE [None]
  - RECTAL HAEMORRHAGE [None]
  - DEPRESSION [None]
  - NIGHT SWEATS [None]
  - MEMORY IMPAIRMENT [None]
  - INSOMNIA [None]
  - POLLAKIURIA [None]
  - AMNESIA [None]
